FAERS Safety Report 10190042 (Version 3)
Quarter: 2014Q3

REPORT INFORMATION
  Report Type: Spontaneous
  Country: US (occurrence: US)
  Receive Date: 20140522
  Receipt Date: 20140902
  Transmission Date: 20150326
  Serious: Yes (Death, Hospitalization, Other)
  Sender: FDA-Public Use
  Company Number: US-009507513-1405USA010650

PATIENT
  Sex: Female
  Weight: 68.75 kg

DRUGS (2)
  1. NUVARING [Suspect]
     Active Substance: ETHINYL ESTRADIOL\ETONOGESTREL
     Indication: CONTRACEPTION
     Dosage: 0.12-0.015MG
     Route: 067
     Dates: start: 20120321
  2. CELEXA [Concomitant]
     Active Substance: CITALOPRAM HYDROBROMIDE
     Indication: EMOTIONAL DISORDER
     Dosage: 20 MG, QD
     Route: 048
     Dates: start: 20120321

REACTIONS (7)
  - Back pain [Unknown]
  - Anaemia [Unknown]
  - Thrombectomy [Unknown]
  - Pulmonary embolism [Fatal]
  - Retroperitoneal haematoma [Unknown]
  - Drug ineffective [Unknown]
  - Deep vein thrombosis [Fatal]

NARRATIVE: CASE EVENT DATE: 201205
